FAERS Safety Report 4907924-7 (Version None)
Quarter: 2006Q1

REPORT INFORMATION
  Report Type: 
  Country: None (occurrence: None)
  Receive Date: 20060207
  Receipt Date: 20060131
  Transmission Date: 20060701
  Serious: Yes (Other)
  Sender: FDA-Public Use
  Company Number: 2006BI001883

PATIENT
  Age: 69 Year
  Sex: Male

DRUGS (1)
  1. AVONEX LIQUID [Suspect]
     Indication: MULTIPLE SCLEROSIS
     Dosage: 30 UG QW IM
     Route: 030
     Dates: start: 20050729

REACTIONS (2)
  - HAEMATURIA [None]
  - PROSTATE CANCER [None]
